FAERS Safety Report 11287485 (Version 1)
Quarter: 2015Q3

REPORT INFORMATION
  Report Type: Spontaneous
  Country: CA (occurrence: None)
  Receive Date: 20150720
  Receipt Date: 20150720
  Transmission Date: 20151125
  Serious: Yes (Disabling)
  Sender: FDA-Public Use
  Company Number: None

PATIENT
  Age: 22 Year
  Sex: Male
  Weight: 72.58 kg

DRUGS (8)
  1. SILKIS [Concomitant]
  2. CYTOMEL [Concomitant]
     Active Substance: LIOTHYRONINE SODIUM
  3. ARIMEDEX [Concomitant]
  4. PENTOXIFILIN [Concomitant]
  5. MAGNESIUM [Concomitant]
     Active Substance: MAGNESIUM
  6. PROPECIA [Suspect]
     Active Substance: FINASTERIDE
     Indication: ANDROGENETIC ALOPECIA
     Dosage: TAKEN BY MOUTH?1 PILL
     Route: 048
     Dates: start: 20000316, end: 20041021
  7. STEIPROX [Concomitant]
  8. MULTI VITAMIN [Concomitant]
     Active Substance: VITAMINS

REACTIONS (15)
  - Metabolic disorder [None]
  - Peyronie^s disease [None]
  - Dermatitis psoriasiform [None]
  - Adrenal insufficiency [None]
  - Hypogonadism [None]
  - Erectile dysfunction [None]
  - Hypothyroidism [None]
  - Vitreous floaters [None]
  - Anxiety [None]
  - Crohn^s disease [None]
  - Depression [None]
  - Vein disorder [None]
  - Gynaecomastia [None]
  - Insomnia [None]
  - Loss of libido [None]

NARRATIVE: CASE EVENT DATE: 20010110
